FAERS Safety Report 6525657-0 (Version None)
Quarter: 2009Q4

REPORT INFORMATION
  Report Type: 
  Country: None (occurrence: None)
  Receive Date: 20091228
  Receipt Date: 20091216
  Transmission Date: 20100525
  Serious: Yes (Life-Threatening, Hospitalization)
  Sender: FDA-Public Use
  Company Number: IDA-00311

PATIENT

DRUGS (3)
  1. PROPRANOLOL [Suspect]
     Dosage: 4 G  FORMULATION: UNK
  2. VERAPAMIL [Suspect]
     Dosage: 1.2 G  FORMULATION: UNK
  3. BETAXOLOL [Suspect]
     Dosage: 6.8 G FORMULATION: UNKNOWN

REACTIONS (5)
  - BLOOD PRESSURE DECREASED [None]
  - CARDIAC ARREST [None]
  - COMA SCALE ABNORMAL [None]
  - DRUG TOXICITY [None]
  - MULTIPLE DRUG OVERDOSE [None]
